FAERS Safety Report 4348231-3 (Version None)
Quarter: 2004Q2

REPORT INFORMATION
  Report Type: 
  Country: None (occurrence: None)
  Receive Date: 20040422
  Receipt Date: 20040405
  Transmission Date: 20050107
  Serious: Yes (Other)
  Sender: FDA-Public Use
  Company Number: US-980910821

PATIENT
  Age: 37 Year
  Sex: Female

DRUGS (3)
  1. ZYPREXA [Suspect]
     Indication: PRADER-WILLI SYNDROME
  2. ZYPREXA [Suspect]
     Indication: PSYCHOTIC DISORDER
  3. RISPERIDONE [Concomitant]

REACTIONS (4)
  - CELLULITIS [None]
  - CONFUSIONAL STATE [None]
  - HYPOTHERMIA [None]
  - SECONDARY ADRENOCORTICAL INSUFFICIENCY [None]
